FAERS Safety Report 5829655-1 (Version None)
Quarter: 2008Q3

REPORT INFORMATION
  Report Type: 
  Country: None (occurrence: None)
  Receive Date: 20080729
  Receipt Date: 20080718
  Transmission Date: 20090109
  Serious: Yes (Hospitalization, Other)
  Sender: FDA-Public Use
  Company Number: WAES 0806GBR00034

PATIENT
  Age: 69 Year
  Sex: Male

DRUGS (10)
  1. CAP VORINOSTAT [Suspect]
     Indication: MYCOSIS FUNGOIDES
     Dosage: 400 MG/QID PO
     Route: 048
     Dates: start: 20071113
  2. CAP BEXAROTENE [Suspect]
     Indication: MYCOSIS FUNGOIDES
     Dosage: 75 MG/QID PO
     Route: 048
     Dates: start: 20080105
  3. BETAHISTINE HYDROCHLORIDE [Concomitant]
  4. BETAMETHASINE VALERATE [Concomitant]
  5. FLUOXETINE HC1 [Concomitant]
  6. INSULIN LISPRO [Concomitant]
  7. ISOPROPYL MYRISTATE (+) MINERAL OIL [Concomitant]
  8. LANOLIN/PETROLATUM [Concomitant]
  9. METFORMIN HCL [Concomitant]
  10. TEMAEPAM [Concomitant]

REACTIONS (3)
  - BALANCE DISORDER [None]
  - GASTROENTERITIS [None]
  - SOMNOLENCE [None]
